FAERS Safety Report 8256957-4 (Version None)
Quarter: 2012Q1

REPORT INFORMATION
  Report Type: 
  Country: None (occurrence: None)
  Receive Date: 20120330
  Receipt Date: 20120330
  Transmission Date: 20120608
  Serious: No
  Sender: FDA-Public Use
  Company Number: None

PATIENT
  Age: 63 Year
  Sex: Male
  Weight: 65.9 kg

DRUGS (1)
  1. MEPERIDINE HCL [Suspect]
     Indication: PROCEDURAL PAIN
     Dosage: 40MG PCA PCA
     Dates: start: 20120313

REACTIONS (5)
  - HYPERHIDROSIS [None]
  - NAUSEA [None]
  - DYSGEUSIA [None]
  - RESPIRATORY DISORDER [None]
  - HYPOTENSION [None]
